FAERS Safety Report 25961382 (Version 1)
Quarter: 2025Q4

REPORT INFORMATION
  Report Type: Spontaneous
  Country: JP (occurrence: JP)
  Receive Date: 20251027
  Receipt Date: 20251027
  Transmission Date: 20260118
  Serious: Yes (Other)
  Sender: AMGEN
  Company Number: JP-AMGEN-JPNSP2025082853

PATIENT
  Age: 51 Year
  Sex: Male

DRUGS (5)
  1. IMDELLTRA [Suspect]
     Active Substance: TARLATAMAB-DLLE
     Indication: Small cell lung cancer
     Dosage: 1 MILLIGRAM, DRIP INFUSION
     Route: 040
     Dates: start: 20250423
  2. IMDELLTRA [Suspect]
     Active Substance: TARLATAMAB-DLLE
     Dosage: 10 MILLIGRAM, DRIP INFUSION, DAY 8
     Route: 040
     Dates: start: 20250430
  3. IMDELLTRA [Suspect]
     Active Substance: TARLATAMAB-DLLE
     Dosage: 10 MILLIGRAM, DRIP INFUSION
     Route: 040
     Dates: start: 20250514
  4. IMDELLTRA [Suspect]
     Active Substance: TARLATAMAB-DLLE
     Dosage: 10 MILLIGRAM, DRIP INFUSION
     Route: 040
     Dates: start: 20250528
  5. IMDELLTRA [Suspect]
     Active Substance: TARLATAMAB-DLLE
     Dosage: 10 MILLIGRAM, DRIP INFUSION
     Route: 040
     Dates: start: 20250611, end: 20250611

REACTIONS (3)
  - Cytokine release syndrome [Recovered/Resolved]
  - Small cell lung cancer [Unknown]
  - Intentional product misuse [Unknown]

NARRATIVE: CASE EVENT DATE: 20250423
